FAERS Safety Report 9619361 (Version 3)
Quarter: 2013Q4

REPORT INFORMATION
  Report Type: Spontaneous
  Country: DE (occurrence: DE)
  Receive Date: 20131014
  Receipt Date: 20131105
  Transmission Date: 20140711
  Serious: Yes (Hospitalization, Other)
  Sender: FDA-Public Use
  Company Number: DE-ROCHE-1288622

PATIENT
  Sex: Male

DRUGS (6)
  1. LUCENTIS [Suspect]
     Indication: AGE-RELATED MACULAR DEGENERATION
     Dosage: 1ST INJECTION
     Route: 050
     Dates: start: 201211
  2. LUCENTIS [Suspect]
     Dosage: 4TH INJECTION
     Route: 050
     Dates: start: 201304
  3. LUCENTIS [Suspect]
     Dosage: 5TH INJECTION
     Route: 050
     Dates: start: 201307
  4. LUCENTIS [Suspect]
     Dosage: 6TH INJECTION
     Route: 050
     Dates: start: 20130806
  5. EUTHYROX [Concomitant]
  6. LORZAAR [Concomitant]

REACTIONS (2)
  - Ischaemic stroke [Recovered/Resolved]
  - Transient ischaemic attack [Recovered/Resolved]
